FAERS Safety Report 16926383 (Version 1)
Quarter: 2019Q4

REPORT INFORMATION
  Report Type: Spontaneous
  Country: GB (occurrence: GB)
  Receive Date: 20191016
  Receipt Date: 20191016
  Transmission Date: 20200122
  Serious: Yes (Other)
  Sender: FDA-Public Use
  Company Number: GB-MYLANLABS-2019M1097304

PATIENT
  Age: 67 Year
  Sex: Male
  Weight: 70 kg

DRUGS (4)
  1. CLINDAMYCIN. [Suspect]
     Active Substance: CLINDAMYCIN
     Indication: LOCALISED INFECTION
     Dosage: 2400 MILLIGRAM, QD
     Route: 048
     Dates: start: 20190624, end: 20190708
  2. RIFAMPICIN [Suspect]
     Active Substance: RIFAMPIN
     Indication: LOCALISED INFECTION
     Dosage: 1 DOSAGE FORM, BID
     Route: 048
     Dates: start: 20190624, end: 20190708
  3. FINASTERIDE. [Concomitant]
     Active Substance: FINASTERIDE
     Dosage: UNK
  4. TAMSULOSIN [Concomitant]
     Active Substance: TAMSULOSIN
     Dosage: UNK

REACTIONS (2)
  - Urticaria [Recovered/Resolved with Sequelae]
  - Eczema [Not Recovered/Not Resolved]

NARRATIVE: CASE EVENT DATE: 20190625
